FAERS Safety Report 24082782 (Version 1)
Quarter: 2024Q3

REPORT INFORMATION
  Report Type: Spontaneous
  Country: CN (occurrence: CN)
  Receive Date: 20240712
  Receipt Date: 20240712
  Transmission Date: 20241016
  Serious: Yes (Death)
  Sender: STRIDES
  Company Number: CN-STRIDES ARCOLAB LIMITED-2024SP008331

PATIENT
  Age: 56 Year
  Sex: Male

DRUGS (6)
  1. ETOPOSIDE [Suspect]
     Active Substance: ETOPOSIDE
     Indication: Squamous cell carcinoma of lung
     Dosage: UNK, CYCLICAL
     Route: 065
  2. SUGEMALIMAB [Suspect]
     Active Substance: SUGEMALIMAB
     Indication: Squamous cell carcinoma of lung
     Dosage: 1200 MILLIGRAM, CYCLICAL, RECEIVED ON DAY 1
     Route: 065
     Dates: start: 20220410, end: 20220710
  3. SUGEMALIMAB [Suspect]
     Active Substance: SUGEMALIMAB
     Dosage: UNK, CYCLICAL, RECEIVED 5 CYCLES
     Route: 065
     Dates: start: 202207, end: 202210
  4. CISPLATIN [Suspect]
     Active Substance: CISPLATIN
     Indication: Squamous cell carcinoma of lung
     Dosage: UNK, CYCLICAL
     Route: 065
  5. PACLITAXEL [Concomitant]
     Active Substance: PACLITAXEL
     Indication: Squamous cell carcinoma of lung
     Dosage: 400 MILLIGRAM, CYCLICAL, ON DAY 1
     Route: 065
     Dates: start: 20220410, end: 20220710
  6. CARBOPLATIN [Concomitant]
     Active Substance: CARBOPLATIN
     Indication: Squamous cell carcinoma of lung
     Dosage: UNK, CYCLICAL, EVERY 3 WEEKS
     Route: 065
     Dates: start: 20220410, end: 20220710

REACTIONS (2)
  - Malignant neoplasm progression [Fatal]
  - Drug ineffective [Fatal]
